FAERS Safety Report 17958780 (Version 1)
Quarter: 2020Q2

REPORT INFORMATION
  Report Type: Spontaneous
  Country: US (occurrence: US)
  Receive Date: 20200629
  Receipt Date: 20200629
  Transmission Date: 20200714
  Serious: Yes (Hospitalization)
  Sender: FDA-Public Use
  Company Number: US-PFIZER INC-2019443786

PATIENT
  Age: 71 Year
  Sex: Male
  Weight: 63.69 kg

DRUGS (14)
  1. VENCLEXTA [Concomitant]
     Active Substance: VENETOCLAX
     Dosage: 50 MG, 1X/DAY, [50 MG TAKE ONCE DAILY BY MOUTH]
     Route: 048
  2. VFEND [Suspect]
     Active Substance: VORICONAZOLE
     Dosage: 100 MG, 2X/DAY
     Route: 048
  3. VFEND [Suspect]
     Active Substance: VORICONAZOLE
     Dosage: 2 DF, 2X/DAY
     Route: 048
  4. VALACYCLOVIR [Concomitant]
     Active Substance: VALACYCLOVIR HYDROCHLORIDE
     Dosage: 500 MG, DAILY
     Route: 048
  5. ASPIRIN. [Concomitant]
     Active Substance: ASPIRIN
     Indication: AORTIC VALVE DISEASE
     Dosage: 81 MG, DAILY [81MG, 1 TABLET BY MOUTH DAILY]
     Route: 048
  6. POTASSIUM [Concomitant]
     Active Substance: POTASSIUM
     Indication: HYPOKALAEMIA
     Dosage: 99 MG, DAILY [99MG, 1 TABLET BY MOUTH ONCE DAILY]
     Route: 048
  7. VFEND [Suspect]
     Active Substance: VORICONAZOLE
     Dosage: 300 MG, 2X/DAY, [200 MG; 1 AND 1/2 TABLET BY MOUTH TWICE DAILY]
     Route: 048
     Dates: start: 20191010
  8. VFEND [Suspect]
     Active Substance: VORICONAZOLE
     Indication: PNEUMONIA
     Dosage: 200 MG, 2X/DAY
  9. VFEND [Suspect]
     Active Substance: VORICONAZOLE
     Indication: FUNGAL INFECTION
     Dosage: 300 MG, 2X/DAY (TAKE 1.5 TABLETS TWICE DAILY)
  10. VFEND [Suspect]
     Active Substance: VORICONAZOLE
     Dosage: 400 MG, 2X/DAY
     Route: 048
  11. VFEND [Suspect]
     Active Substance: VORICONAZOLE
     Dosage: 400 MG, 2X/DAY (TWO 200MG TABLETS IN THE MORNING AND TWO 200MG TABLETS AT NIGHT)
  12. VENCLEXTA [Concomitant]
     Active Substance: VENETOCLAX
     Indication: CHRONIC LYMPHOCYTIC LEUKAEMIA
     Dosage: 10 MG, 1X/DAY
     Route: 048
  13. IRON [Concomitant]
     Active Substance: IRON
     Dosage: 65 MG, 1X/DAY
     Route: 048
  14. INFLECTRA [Concomitant]
     Active Substance: INFLIXIMAB-DYYB
     Dosage: 50 MG, 1X/DAY (50MG TABLET BY MOUTH ONCE A DAY)
     Route: 048
     Dates: start: 201901

REACTIONS (4)
  - Intentional product misuse [Unknown]
  - Pyrexia [Unknown]
  - Malaise [Unknown]
  - Dyspnoea [Unknown]

NARRATIVE: CASE EVENT DATE: 20191116
